FAERS Safety Report 16113412 (Version 4)
Quarter: 2019Q4

REPORT INFORMATION
  Report Type: Spontaneous
  Country: US (occurrence: US)
  Receive Date: 20190325
  Receipt Date: 20191127
  Transmission Date: 20200122
  Serious: No
  Sender: FDA-Public Use
  Company Number: US-PFIZER INC-2019121147

PATIENT
  Age: 15 Year
  Sex: Female
  Weight: 113.4 kg

DRUGS (1)
  1. GENOTROPIN [Suspect]
     Active Substance: SOMATROPIN
     Indication: PRADER-WILLI SYNDROME
     Dosage: 2 MG, DAILY

REACTIONS (4)
  - Glucose tolerance impaired [Unknown]
  - Device issue [Unknown]
  - Insulin-like growth factor increased [Unknown]
  - Poor quality device used [Unknown]
